FAERS Safety Report 18650619 (Version 2)
Quarter: 2021Q1

REPORT INFORMATION
  Report Type: Spontaneous
  Country: JP (occurrence: JP)
  Receive Date: 20201223
  Receipt Date: 20210114
  Transmission Date: 20210419
  Serious: Yes (Hospitalization)
  Sender: FDA-Public Use
  Company Number: JP-JNJFOC-20201231638

PATIENT
  Age: 87 Year
  Sex: Male
  Weight: 58.1 kg

DRUGS (6)
  1. REFLEX [Concomitant]
     Active Substance: MIRTAZAPINE
     Dosage: DOSE UNKNOWN
     Route: 048
  2. URIEF [Concomitant]
     Active Substance: SILODOSIN
     Dosage: DOSE UNKNOWN
     Route: 048
  3. GLIMEPIRIDE. [Concomitant]
     Active Substance: GLIMEPIRIDE
     Dosage: DOSE UNKNOWN
     Route: 048
  4. REMINYL [Suspect]
     Active Substance: GALANTAMINE
     Indication: DEMENTIA
     Route: 048
     Dates: end: 20201224
  5. THYRADIN [Concomitant]
     Active Substance: LEVOTHYROXINE
     Dosage: DOSE UNKNOWN
     Route: 065
  6. METFORMIN HYDROCHLORIDE. [Concomitant]
     Active Substance: METFORMIN HYDROCHLORIDE
     Dosage: DOSE UNKNOWN
     Route: 048

REACTIONS (1)
  - Cerebral infarction [Unknown]

NARRATIVE: CASE EVENT DATE: 2020
